FAERS Safety Report 23074709 (Version 1)
Quarter: 2023Q4

REPORT INFORMATION
  Report Type: Report from Study
  Country: GB (occurrence: GB)
  Receive Date: 20231017
  Receipt Date: 20231017
  Transmission Date: 20240110
  Serious: Yes (Other)
  Sender: FDA-Public Use
  Company Number: GB-JNJFOC-20231023507

PATIENT
  Age: 42 Year
  Sex: Female

DRUGS (1)
  1. PONESIMOD [Suspect]
     Active Substance: PONESIMOD
     Indication: Multiple sclerosis
     Dosage: TITRATION
     Route: 048
     Dates: start: 20231006

REACTIONS (2)
  - Blood pressure fluctuation [Unknown]
  - Bradycardia [Unknown]

NARRATIVE: CASE EVENT DATE: 20231006
